FAERS Safety Report 4482486-X (Version None)
Quarter: 2004Q4

REPORT INFORMATION
  Report Type: 
  Country: None (occurrence: None)
  Receive Date: 20041022
  Receipt Date: 20030929
  Transmission Date: 20050328
  Serious: Yes (Hospitalization, Disabling, Other)
  Sender: FDA-Public Use
  Company Number: US-MERCK-0310USA00073

PATIENT
  Age: 19 Year
  Sex: Male
  Weight: 95 kg

DRUGS (3)
  1. VIOXX [Suspect]
     Indication: ARTHRALGIA
     Route: 048
     Dates: start: 20020220, end: 20020101
  2. VIOXX [Suspect]
     Indication: ARTHRITIS
     Route: 048
     Dates: start: 20020220, end: 20020101
  3. CELEBREX [Concomitant]
     Route: 065

REACTIONS (9)
  - ANEURYSM [None]
  - CEREBRAL HAEMANGIOMA [None]
  - CONVULSION [None]
  - EMOTIONAL DISTRESS [None]
  - HAEMARTHROSIS [None]
  - JOINT EFFUSION [None]
  - LIGAMENT INJURY [None]
  - LIGAMENT SPRAIN [None]
  - SCAR [None]
